FAERS Safety Report 10743309 (Version 1)
Quarter: 2015Q1

REPORT INFORMATION
  Report Type: Spontaneous
  Country: NL (occurrence: NL)
  Receive Date: 20150127
  Receipt Date: 20150127
  Transmission Date: 20150721
  Serious: Yes (Hospitalization, Other)
  Sender: FDA-Public Use
  Company Number: NL-MYLANLABS-2015M1001662

PATIENT

DRUGS (4)
  1. DIAZEPAM. [Concomitant]
     Active Substance: DIAZEPAM
     Route: 065
  2. METHADONE [Concomitant]
     Active Substance: METHADONE HYDROCHLORIDE
     Route: 065
  3. PROMETHAZINE [Concomitant]
     Active Substance: PROMETHAZINE\PROMETHAZINE HYDROCHLORIDE
     Dosage: IF NEEDED
     Route: 065
  4. NALOXONE [Suspect]
     Active Substance: NALOXONE
     Dosage: 0.4MG TWICE
     Route: 050

REACTIONS (4)
  - Agitation [Unknown]
  - Ventricular tachycardia [Recovering/Resolving]
  - Rhabdomyolysis [Recovered/Resolved]
  - Cardiogenic shock [None]
